FAERS Safety Report 4297736-2 (Version None)
Quarter: 2004Q1

REPORT INFORMATION
  Report Type: 
  Country: None (occurrence: None)
  Receive Date: 20040213
  Receipt Date: 20040204
  Transmission Date: 20041129
  Serious: Yes (Hospitalization)
  Sender: FDA-Public Use
  Company Number: 2004-02-0269

PATIENT
  Age: 56 Year
  Sex: Female

DRUGS (2)
  1. PEG-INTRON [Suspect]
     Indication: CHRONIC HEPATITIS
     Dosage: 100 MCG QWK SUBCUTANEOUS
     Route: 058
     Dates: start: 20030109, end: 20031020
  2. REBETOL [Suspect]
     Indication: CHRONIC HEPATITIS
     Dosage: 800 MG QD ORAL
     Route: 048
     Dates: start: 20030109, end: 20031020

REACTIONS (1)
  - PERIPHERAL SENSORY NEUROPATHY [None]
